FAERS Safety Report 10345327 (Version 5)
Quarter: 2014Q3

REPORT INFORMATION
  Report Type: Spontaneous
  Country: US (occurrence: None)
  Receive Date: 20140724
  Receipt Date: 20140904
  Transmission Date: 20150326
  Serious: Yes (Hospitalization, Congenital Anomaly, Other)
  Sender: FDA-Public Use
  Company Number: 2014AP003639

PATIENT
  Age: 0 Day
  Sex: Female

DRUGS (2)
  1. PAXIL CR [Suspect]
     Active Substance: PAROXETINE HYDROCHLORIDE
     Indication: FOETAL EXPOSURE DURING PREGNANCY
     Route: 064
  2. PAXIL CR [Suspect]
     Active Substance: PAROXETINE HYDROCHLORIDE
     Route: 064

REACTIONS (25)
  - Cardiomegaly [None]
  - Developmental delay [None]
  - Patent ductus arteriosus [None]
  - Feeding disorder neonatal [None]
  - Atrioventricular septal defect [None]
  - Mitral valve incompetence [None]
  - Developmental coordination disorder [None]
  - Constipation [None]
  - Mitral valve disease [None]
  - Maternal drugs affecting foetus [None]
  - Sleep disorder [None]
  - Failure to thrive [None]
  - Autism [None]
  - Abnormal behaviour [None]
  - Aortic occlusion [None]
  - Cardiac valve disease [None]
  - Foetal exposure during pregnancy [None]
  - Ventricular septal defect [None]
  - Atrial septal defect [None]
  - Tachypnoea [None]
  - Cardiac failure congestive [None]
  - Pulmonary oedema [None]
  - Neutropenia [None]
  - Coarctation of the aorta [None]
  - Pulmonary hypertension [None]

NARRATIVE: CASE EVENT DATE: 20060927
